FAERS Safety Report 22321651 (Version 1)
Quarter: 2023Q2

REPORT INFORMATION
  Report Type: Spontaneous
  Country: CN (occurrence: CN)
  Receive Date: 20230515
  Receipt Date: 20230515
  Transmission Date: 20230722
  Serious: Yes (Hospitalization, Other)
  Sender: FDA-Public Use
  Company Number: None

PATIENT
  Age: 57 Year
  Sex: Female
  Weight: 49 kg

DRUGS (10)
  1. CYCLOPHOSPHAMIDE [Suspect]
     Active Substance: CYCLOPHOSPHAMIDE
     Indication: Sjogren^s syndrome
     Dosage: 0.2 G, ONCE EVERY OTHER DAY, DILUTED WITH 0.9% SODIUM CHLORIDE 250 ML
     Route: 041
     Dates: start: 20230409, end: 20230413
  2. CYCLOPHOSPHAMIDE [Suspect]
     Active Substance: CYCLOPHOSPHAMIDE
     Indication: Multiple organ dysfunction syndrome
  3. SODIUM CHLORIDE [Suspect]
     Active Substance: SODIUM CHLORIDE
     Indication: Medication dilution
     Dosage: 250 ML, ONCE EVERY OTHER DAY, STRENGTH: 0.9%, DOSAGE FORM: INJECTION, USED TO DILUTE CYCLOPHOSPHAMID
     Route: 041
     Dates: start: 20230409, end: 20230413
  4. SODIUM CHLORIDE [Suspect]
     Active Substance: SODIUM CHLORIDE
     Dosage: 100 ML, ONCE DAILY, STRENGTH: 0.9%, DOSAGE FORM: INJECTION, USED TO DILUTE METHYLPREDNISOLONE SUCCIN
     Route: 041
     Dates: start: 20230409, end: 20230413
  5. METHYLPREDNISOLONE SODIUM SUCCINATE [Suspect]
     Active Substance: METHYLPREDNISOLONE SODIUM SUCCINATE
     Indication: Sjogren^s syndrome
     Dosage: 40 MG, ONCE DAILY, DILUTED WITH 0.9% SODIUM CHLORIDE 100 ML
     Route: 041
     Dates: start: 20230409, end: 20230413
  6. METHYLPREDNISOLONE SODIUM SUCCINATE [Suspect]
     Active Substance: METHYLPREDNISOLONE SODIUM SUCCINATE
     Indication: Multiple organ dysfunction syndrome
  7. PIPERACILLIN AND TAZOBACTAM [Concomitant]
     Active Substance: PIPERACILLIN SODIUM\TAZOBACTAM SODIUM
     Indication: Pneumonia
     Dosage: 4.5 G, TWICE DAILY, ANTIBIOTIC
     Route: 042
     Dates: start: 20230404, end: 20230413
  8. PIPERACILLIN AND TAZOBACTAM [Concomitant]
     Active Substance: PIPERACILLIN SODIUM\TAZOBACTAM SODIUM
     Indication: Anti-infective therapy
  9. CIMETIDINE [Concomitant]
     Active Substance: CIMETIDINE
     Indication: Prophylaxis
     Dosage: 0.2 G, ONCE DAILY
     Route: 041
     Dates: start: 20230409, end: 20230413
  10. CIMETIDINE [Concomitant]
     Active Substance: CIMETIDINE
     Indication: Antacid therapy

REACTIONS (5)
  - Myelosuppression [Recovering/Resolving]
  - Platelet count decreased [Recovering/Resolving]
  - Chest discomfort [Recovering/Resolving]
  - Orthopnoea [Recovering/Resolving]
  - Dyspnoea [Recovering/Resolving]

NARRATIVE: CASE EVENT DATE: 20230413
